FAERS Safety Report 6854119-6 (Version None)
Quarter: 2010Q3

REPORT INFORMATION
  Report Type: 
  Country: None (occurrence: None)
  Receive Date: 20100717
  Receipt Date: 20080205
  Transmission Date: 20110219
  Serious: Yes (Other)
  Sender: FDA-Public Use
  Company Number: US-PFIZER INC-2007108240

PATIENT
  Sex: Female

DRUGS (3)
  1. CHANTIX [Suspect]
  2. EFFEXOR [Interacting]
  3. CYMBALTA [Concomitant]

REACTIONS (3)
  - AMNESIA [None]
  - DISTURBANCE IN ATTENTION [None]
  - DRUG INTERACTION [None]
